FAERS Safety Report 4280577-X (Version None)
Quarter: 2004Q1

REPORT INFORMATION
  Report Type: 
  Country: None (occurrence: None)
  Receive Date: 20040127
  Receipt Date: 20040114
  Transmission Date: 20041129
  Serious: Yes (Death, Hospitalization)
  Sender: FDA-Public Use
  Company Number: 2003121907

PATIENT
  Age: 71 Year
  Sex: Male

DRUGS (4)
  1. DIFLUCAN [Suspect]
     Indication: FUNGAEMIA
     Dosage: 200 MG INTRAVENOUS
     Route: 042
     Dates: start: 20031007, end: 20031029
  2. LANSOPRAZOLE [Suspect]
     Indication: GASTRIC ULCER
     Dosage: 15 MG ORAL
     Route: 048
     Dates: start: 20031007, end: 20031104
  3. PIPERACILLIN SODIUM [Concomitant]
  4. TPN [Concomitant]

REACTIONS (1)
  - BLOOD ALKALINE PHOSPHATASE INCREASED [None]
